FAERS Safety Report 17661057 (Version 1)
Quarter: 2020Q2

REPORT INFORMATION
  Report Type: Spontaneous
  Country: US (occurrence: US)
  Receive Date: 20200411
  Receipt Date: 20200411
  Transmission Date: 20200713
  Serious: Yes (Disabling)
  Sender: FDA-Public Use
  Company Number: None

PATIENT
  Age: 18 Year
  Sex: Female
  Weight: 67.5 kg

DRUGS (19)
  1. UBIQUINOL [Concomitant]
     Active Substance: UBIQUINOL
  2. FAMOTIDINE. [Concomitant]
     Active Substance: FAMOTIDINE
  3. INFLIXIMAB (REMICADE( [Concomitant]
  4. ONDANSETRON [Concomitant]
     Active Substance: ONDANSETRON
  5. CELECOXIB. [Concomitant]
     Active Substance: CELECOXIB
  6. LIDOCAINE-PRILOCAINE CREAM [Concomitant]
  7. MAGIC MOUTHWASH W/LIDOCAINE [Concomitant]
  8. METHYLCOBALAMIN. [Concomitant]
     Active Substance: METHYLCOBALAMIN
  9. OMEGA [Concomitant]
  10. ATENOLOL. [Concomitant]
     Active Substance: ATENOLOL
  11. ONDANSETRON [Concomitant]
     Active Substance: ONDANSETRON
  12. VENTOLIN [Concomitant]
     Active Substance: ALBUTEROL SULFATE
  13. MIRALAX [Concomitant]
     Active Substance: POLYETHYLENE GLYCOL 3350
  14. LP SHUNT [Concomitant]
  15. RASUVO [Suspect]
     Active Substance: METHOTREXATE SODIUM
     Indication: JUVENILE IDIOPATHIC ARTHRITIS
     Dosage: ?          QUANTITY:1 INJECTION(S);?
     Route: 030
     Dates: start: 20191218, end: 20200403
  16. PREDNISONE. [Concomitant]
     Active Substance: PREDNISONE
  17. FOLIC ACID. [Concomitant]
     Active Substance: FOLIC ACID
  18. LEUCOVORIN. [Concomitant]
     Active Substance: LEUCOVORIN
  19. RASUVO [Concomitant]
     Active Substance: METHOTREXATE SODIUM

REACTIONS (1)
  - Urticaria [None]

NARRATIVE: CASE EVENT DATE: 20191218
